FAERS Safety Report 7053427-6 (Version None)
Quarter: 2010Q4

REPORT INFORMATION
  Report Type: 
  Country: None (occurrence: None)
  Receive Date: 20101020
  Receipt Date: 20101007
  Transmission Date: 20110411
  Serious: Yes (Hospitalization)
  Sender: FDA-Public Use
  Company Number: PHHY2010IE25093

PATIENT
  Sex: Female

DRUGS (3)
  1. CLOZARIL [Suspect]
     Indication: SCHIZOPHRENIA
     Dosage: 300MG
     Route: 048
     Dates: start: 20100303
  2. VALPROATE SODIUM [Concomitant]
     Indication: PROPHYLAXIS
     Dosage: 600MG
     Route: 048
  3. AMINOPHYLLINE [Concomitant]
     Indication: UPPER RESPIRATORY TRACT INFECTION

REACTIONS (3)
  - LOWER RESPIRATORY TRACT INFECTION [None]
  - RESPIRATORY TRACT INFECTION [None]
  - UPPER RESPIRATORY TRACT INFECTION [None]
